FAERS Safety Report 21908756 (Version 1)
Quarter: 2023Q1

REPORT INFORMATION
  Report Type: Spontaneous
  Country: NL (occurrence: NL)
  Receive Date: 20230125
  Receipt Date: 20230125
  Transmission Date: 20230418
  Serious: Yes (Other)
  Sender: FDA-Public Use
  Company Number: None

PATIENT
  Sex: Male
  Weight: 86.9 kg

DRUGS (10)
  1. PANTOPRAZOLE SODIUM [Suspect]
     Active Substance: PANTOPRAZOLE SODIUM
     Indication: Abdominal pain upper
     Dosage: 40 MILLIGRAM DAILY; MSR , BRAND NAME NOT SPECIFIED
     Dates: start: 20221212, end: 20221215
  2. FLUCLOXACILLIN [Suspect]
     Active Substance: FLUCLOXACILLIN
     Indication: Infection
     Dosage: 12 DOSAGE FORMS DAILY; PDR V INJVLST , BRAND NAME NOT SPECIFIED
     Dates: start: 20221212, end: 20221215
  3. MOVICOLON [Concomitant]
     Active Substance: POLYETHYLENE GLYCOL 3350\POTASSIUM CHLORIDE\SODIUM BICARBONATE\SODIUM CHLORIDE
     Indication: Product used for unknown indication
     Dosage: MACROGOL/SALTS PDR V DRINK (MOVIC/MOLAX/LAXT/GEN) / MOVICOLON POWDER FOR DRINK IN SACHET
  4. ALGELDRATE\MAGNESIUM HYDROXIDE [Concomitant]
     Active Substance: ALGELDRATE\MAGNESIUM HYDROXIDE
     Indication: Product used for unknown indication
     Dosage: 40/20 MG/ML (MILLIGRAM PER MILLILITER) ,BRAND NAME NOT SPECIFIED ,
     Route: 048
  5. CEFAZOLIN SODIUM [Concomitant]
     Active Substance: CEFAZOLIN SODIUM
     Indication: Product used for unknown indication
     Dosage: INFVLST / BRAND NAME NOT SPECIFIED,
  6. OXYCODONE [Concomitant]
     Active Substance: OXYCODONE
     Indication: Product used for unknown indication
     Dosage: BRAND NAME NOT SPECIFIED ,
  7. ACETAMINOPHEN [Concomitant]
     Active Substance: ACETAMINOPHEN
     Indication: Product used for unknown indication
     Dosage: BRAND NAME NOT SPECIFIED
  8. METOCLOPRAMIDE [Concomitant]
     Active Substance: METOCLOPRAMIDE
     Indication: Product used for unknown indication
     Dosage: BRAND NAME NOT SPECIFIED,
  9. FAMOTIDINE [Concomitant]
     Active Substance: FAMOTIDINE
     Indication: Product used for unknown indication
     Dosage: BRAND NAME NOT SPECIFIED
  10. DALTEPARINE [Concomitant]
     Indication: Product used for unknown indication
     Dosage: INJVLST 25,000IU/ML ,BRAND NAME NOT SPECIFIED

REACTIONS (2)
  - Acute kidney injury [Recovering/Resolving]
  - Tubulointerstitial nephritis [Recovering/Resolving]
